FAERS Safety Report 16498297 (Version 1)
Quarter: 2019Q2

REPORT INFORMATION
  Report Type: Report from Study
  Country: US (occurrence: US)
  Receive Date: 20190629
  Receipt Date: 20190629
  Transmission Date: 20190711
  Serious: Yes (Hospitalization)
  Sender: FDA-Public Use
  Company Number: US-CELGENEUS-163-21880-11022107

PATIENT
  Age: 72 Year
  Sex: Male
  Weight: 65.83 kg

DRUGS (2)
  1. REVLIMID [Suspect]
     Active Substance: LENALIDOMIDE
     Indication: PLASMA CELL MYELOMA
     Dosage: 25 MILLIGRAM
     Route: 048
     Dates: start: 20100517, end: 20101011
  2. REVLIMID [Suspect]
     Active Substance: LENALIDOMIDE
     Dosage: 10 MILLIGRAM
     Route: 048
     Dates: start: 20101028, end: 20110310

REACTIONS (8)
  - Femur fracture [Recovered/Resolved]
  - Urinary tract infection enterococcal [Unknown]
  - Dehydration [Unknown]
  - Toxicity to various agents [Unknown]
  - Fall [Unknown]
  - Atrial fibrillation [Unknown]
  - Metabolic encephalopathy [Unknown]
  - Renal failure [Unknown]

NARRATIVE: CASE EVENT DATE: 20110101
